FAERS Safety Report 14123361 (Version 1)
Quarter: 2017Q4

REPORT INFORMATION
  Report Type: Spontaneous
  Country: US (occurrence: US)
  Receive Date: 20171025
  Receipt Date: 20171025
  Transmission Date: 20180321
  Serious: No
  Sender: FDA-Public Use
  Company Number: US-KERYX BIOPHARMACEUTICALS INC.-2017US002942

PATIENT
  Age: 54 Year
  Sex: Female
  Weight: 62.5 kg

DRUGS (10)
  1. LOPERAMIDE [Concomitant]
     Active Substance: LOPERAMIDE
     Dosage: 2 MG, EVERY 4 HRS , AFTER EACH DOSING OF 650 MG ACETAMINOPHEN
     Route: 048
  2. BENADRYL [Concomitant]
     Active Substance: DIPHENHYDRAMINE HYDROCHLORIDE
     Dosage: 25 MG, PRN
     Route: 048
  3. AURYXIA [Suspect]
     Active Substance: TETRAFERRIC TRICITRATE DECAHYDRATE
     Indication: BLOOD PHOSPHORUS INCREASED
     Dosage: 6 G (6 TABLETS), DAILY
     Dates: start: 20170513, end: 20170621
  4. TUMS                               /00193601/ [Concomitant]
     Active Substance: CALCIUM CARBONATE\MAGNESIUM CARBONATE\MAGNESIUM TRISILICATE
     Dosage: 1 TAB, WITH MEALS
     Route: 048
  5. COZAAR [Concomitant]
     Active Substance: LOSARTAN POTASSIUM
     Dosage: 100 MG, QD
     Route: 048
  6. METOPROLOL SUCCINATE. [Concomitant]
     Active Substance: METOPROLOL SUCCINATE
     Dosage: 50 MG, BID
     Route: 048
  7. HECTOROL [Concomitant]
     Active Substance: DOXERCALCIFEROL
     Dosage: 2.0 ?G, 1ST, 2ND, 3RD SCH
     Route: 042
  8. ACETAMINOPHEN. [Concomitant]
     Active Substance: ACETAMINOPHEN
     Dosage: 650 MG, Q4 HRS PRN
     Route: 048
  9. EPOETIN [Concomitant]
     Active Substance: ERYTHROPOIETIN
     Dosage: 2000 UNIT, 1ST, 2ND, AND 3RD SCH
     Route: 042
  10. HYDRALAZINE [Concomitant]
     Active Substance: HYDRALAZINE HYDROCHLORIDE
     Dosage: 25 MG, BID
     Route: 048

REACTIONS (1)
  - Pruritus [Recovered/Resolved]

NARRATIVE: CASE EVENT DATE: 201705
